FAERS Safety Report 25024692 (Version 2)
Quarter: 2025Q1

REPORT INFORMATION
  Report Type: Spontaneous
  Country: US (occurrence: US)
  Receive Date: 20250228
  Receipt Date: 20250305
  Transmission Date: 20250408
  Serious: No
  Sender: Haleon PLC
  Company Number: US-HALEON-2230694

PATIENT
  Sex: Female

DRUGS (2)
  1. ALLI [Suspect]
     Active Substance: ORLISTAT
     Indication: Weight decreased
  2. ALLI [Suspect]
     Active Substance: ORLISTAT

REACTIONS (3)
  - Drug ineffective [Unknown]
  - Product complaint [Unknown]
  - Suspected counterfeit product [Unknown]
